FAERS Safety Report 4396182-0 (Version None)
Quarter: 2004Q3

REPORT INFORMATION
  Report Type: 
  Country: None (occurrence: None)
  Receive Date: 20040709
  Receipt Date: 20040628
  Transmission Date: 20050211
  Serious: Yes (Hospitalization)
  Sender: FDA-Public Use
  Company Number: US-SHR-04-024453

PATIENT
  Age: 50 Year
  Sex: Female
  Weight: 67.1 kg

DRUGS (6)
  1. BETASERON [Suspect]
     Indication: MULTIPLE SCLEROSIS
     Dosage: 8 MIU, EVERY 2D, SUBCUTANEOUS
     Route: 058
     Dates: start: 19960101
  2. PROVIGIL [Concomitant]
  3. WARFARIN (WARFARIN) [Concomitant]
  4. TRAZODONE HCL [Concomitant]
  5. EFFEXOR [Concomitant]
  6. ACTONEL [Concomitant]

REACTIONS (3)
  - BREAST CANCER FEMALE [None]
  - INJECTION SITE NECROSIS [None]
  - INJECTION SITE PAIN [None]
